FAERS Safety Report 8311074-X (Version None)
Quarter: 2012Q2

REPORT INFORMATION
  Report Type: 
  Country: None (occurrence: None)
  Receive Date: 20120425
  Receipt Date: 20120420
  Transmission Date: 20120825
  Serious: No
  Sender: FDA-Public Use
  Company Number: US-BIOGENIDEC-2012BI013894

PATIENT
  Age: 44 Year
  Sex: Female

DRUGS (1)
  1. TYSABRI [Suspect]
     Indication: MULTIPLE SCLEROSIS
     Route: 042
     Dates: start: 20070123

REACTIONS (7)
  - DISTURBANCE IN ATTENTION [None]
  - ANGER [None]
  - FRUSTRATION [None]
  - FALL [None]
  - MULTIPLE SCLEROSIS RELAPSE [None]
  - CONFUSIONAL STATE [None]
  - CENTRAL NERVOUS SYSTEM LESION [None]
